FAERS Safety Report 23872099 (Version 3)
Quarter: 2024Q2

REPORT INFORMATION
  Report Type: Spontaneous
  Country: FR (occurrence: FR)
  Receive Date: 20240520
  Receipt Date: 20240603
  Transmission Date: 20240716
  Serious: Yes (Death, Hospitalization)
  Sender: FDA-Public Use
  Company Number: FR-ROCHE-3559682

PATIENT
  Age: 41 Year
  Sex: Female

DRUGS (3)
  1. BEVACIZUMAB [Suspect]
     Active Substance: BEVACIZUMAB
     Indication: Non-small cell lung cancer
     Dosage: ON 18/APR/2024, SHE RECEIVED HER LAST DOSE OF BEVACIZUMAB 625 MG EVERY 3 WEEKS
     Route: 042
     Dates: start: 20240104
  2. PACLITAXEL [Suspect]
     Active Substance: PACLITAXEL
     Indication: Non-small cell lung cancer
     Dosage: ON 18/APR/2024, SHE RECEIVED HER LAST DOSE OF PACLITAXEL 282 MG EVERY 3 WEEKS
     Route: 042
     Dates: start: 20240104, end: 20240418
  3. ATEZOLIZUMAB [Concomitant]
     Active Substance: ATEZOLIZUMAB
     Indication: Non-small cell lung cancer
     Dosage: ON 18/APR/2024, SHE RECEIVED HER LAST DOSE OF ATEZOLIZUMAB 1200 MG EVERY 3 WEEKS
     Route: 065
     Dates: start: 20240104, end: 20240418

REACTIONS (2)
  - Coma [Fatal]
  - Haemorrhagic stroke [Fatal]

NARRATIVE: CASE EVENT DATE: 20240505
